FAERS Safety Report 9611620 (Version 3)
Quarter: 2013Q4

REPORT INFORMATION
  Report Type: Spontaneous
  Country: JP (occurrence: JP)
  Receive Date: 20131010
  Receipt Date: 20131025
  Transmission Date: 20140711
  Serious: Yes (Death, Hospitalization, Disabling)
  Sender: FDA-Public Use
  Company Number: JP-AMGEN-JPNSP2013062072

PATIENT
  Age: 63 Year
  Sex: Male
  Weight: 47 kg

DRUGS (9)
  1. RANMARK [Suspect]
     Indication: METASTASES TO BONE
     Dosage: 120 MG, QD
     Route: 058
     Dates: start: 20130809, end: 20130809
  2. RANMARK [Suspect]
     Indication: GASTRIC CANCER RECURRENT
  3. TAXOL [Concomitant]
     Dosage: 100 MG, QD
     Route: 042
     Dates: start: 20130809, end: 20130816
  4. CALCICOL [Concomitant]
     Dosage: 8.5 % X 5 AMPOULES
     Route: 065
  5. ALOXI [Concomitant]
     Route: 042
     Dates: start: 20130809, end: 20130816
  6. DEXART [Concomitant]
     Route: 042
     Dates: start: 20130809, end: 20130816
  7. GASTER                             /00661201/ [Concomitant]
     Route: 042
     Dates: start: 20130809, end: 20130816
  8. OXYCONTIN [Concomitant]
     Dosage: 5 MG, BID
     Route: 048
     Dates: start: 20130802
  9. VENA                               /00000402/ [Concomitant]
     Route: 048
     Dates: start: 20130809, end: 20130816

REACTIONS (2)
  - Gastric cancer [Fatal]
  - Hypocalcaemia [Recovering/Resolving]
